FAERS Safety Report 9331875 (Version 1)
Quarter: 2013Q2

REPORT INFORMATION
  Report Type: Spontaneous
  Country: GB (occurrence: None)
  Receive Date: 20130603
  Receipt Date: 20130603
  Transmission Date: 20140414
  Serious: Yes (Death, Other)
  Sender: FDA-Public Use
  Company Number: GB-023532

PATIENT
  Age: 3 Year
  Sex: Male

DRUGS (6)
  1. BUSULFAN [Suspect]
     Indication: THALASSAEMIA BETA
  2. CYCLOPHOSPHAMIDE [Suspect]
     Indication: THALASSAEMIA BETA
  3. METHOTREXATE (METHOTREXATE) (UNKNOWN) [Suspect]
     Indication: PROPHYLAXIS AGAINST GRAFT VERSUS HOST DISEASE
  4. ALEMTUZUMAB [Suspect]
     Indication: BONE MARROW CONDITIONING REGIMEN
  5. THIOTEPA [Suspect]
     Indication: BONE MARROW CONDITIONING REGIMEN
  6. CICLOSPORIN [Suspect]
     Indication: PROPHYLAXIS AGAINST GRAFT VERSUS HOST DISEASE

REACTIONS (6)
  - Venoocclusive disease [None]
  - Malaise [None]
  - Pneumonia cytomegaloviral [None]
  - Cytomegalovirus infection [None]
  - Acidosis [None]
  - Toxicity to various agents [None]
